FAERS Safety Report 7204881-8 (Version None)
Quarter: 2010Q4

REPORT INFORMATION
  Report Type: 
  Country: None (occurrence: None)
  Receive Date: 20101230
  Receipt Date: 20101217
  Transmission Date: 20110411
  Serious: Yes (Hospitalization, Other)
  Sender: FDA-Public Use
  Company Number: PHEH2007US03406

PATIENT
  Sex: Male

DRUGS (20)
  1. ZOMETA [Suspect]
     Dosage: UNK
  2. AREDIA [Suspect]
  3. TESTIM [Concomitant]
     Dosage: 1%
  4. MULTIPLE VITAMINS [Concomitant]
  5. METAMUCIL-2 [Concomitant]
     Dosage: 0.52 GM
  6. ASPIRIN [Concomitant]
  7. FISH OIL [Concomitant]
     Dosage: 500 MG
  8. EFFEXOR XR [Concomitant]
     Dosage: 37.5
  9. MORPHINE [Concomitant]
     Dosage: VIA PUMP
  10. INFLUENZA VIRUS VACCINE [Concomitant]
  11. WELLBUTRIN XL [Concomitant]
  12. ANDROGEL [Concomitant]
     Dosage: DAILY
  13. LEXAPRO [Concomitant]
  14. ACETAMINOPHEN [Concomitant]
  15. OXYCODONE [Concomitant]
  16. ATIVAN [Concomitant]
  17. DECORTIN [Concomitant]
  18. LOPID [Concomitant]
  19. ZOLOFT [Concomitant]
  20. PRILOSEC [Concomitant]

REACTIONS (44)
  - ABDOMINAL PAIN [None]
  - ANAEMIA [None]
  - ANXIETY [None]
  - ATELECTASIS [None]
  - BACK PAIN [None]
  - BACTERIAL INFECTION [None]
  - BONE DISORDER [None]
  - CANCER PAIN [None]
  - CHEST DISCOMFORT [None]
  - COMPRESSION FRACTURE [None]
  - COUGH [None]
  - DECREASED INTEREST [None]
  - DEEP VEIN THROMBOSIS [None]
  - DEPRESSION [None]
  - DYSPEPSIA [None]
  - DYSPNOEA [None]
  - ERECTILE DYSFUNCTION [None]
  - FACET JOINT SYNDROME [None]
  - FATIGUE [None]
  - FEBRILE NEUTROPENIA [None]
  - FISTULA [None]
  - FLATULENCE [None]
  - FRACTURED SACRUM [None]
  - GENERAL PHYSICAL HEALTH DETERIORATION [None]
  - HEADACHE [None]
  - HEPATIC STEATOSIS [None]
  - HERPES ZOSTER [None]
  - INFLAMMATION [None]
  - INTERVERTEBRAL DISC DEGENERATION [None]
  - METASTASES TO BONE [None]
  - NAUSEA [None]
  - NEUROPATHY PERIPHERAL [None]
  - OSTEONECROSIS [None]
  - OSTEONECROSIS OF JAW [None]
  - PAIN [None]
  - PERITONEAL DISORDER [None]
  - PLASMACYTOSIS [None]
  - POST HERPETIC NEURALGIA [None]
  - SPINAL OSTEOARTHRITIS [None]
  - STRESS [None]
  - UMBILICAL HERNIA [None]
  - URTICARIA [None]
  - VOMITING [None]
  - WEIGHT DECREASED [None]
